FAERS Safety Report 22263710 (Version 1)
Quarter: 2023Q2

REPORT INFORMATION
  Report Type: Spontaneous
  Country: US (occurrence: US)
  Receive Date: 20230428
  Receipt Date: 20230428
  Transmission Date: 20230722
  Serious: No
  Sender: FDA-Public Use
  Company Number: US-TARO PHARMACEUTICALS USA INC.-2023TAR00089

PATIENT

DRUGS (2)
  1. FLUOROURACIL [Suspect]
     Active Substance: FLUOROURACIL
     Indication: Actinic keratosis
     Dosage: UNK
     Route: 061
     Dates: start: 202301
  2. WHITE PETROLATUM [Concomitant]
     Active Substance: PETROLATUM
     Indication: Product used for unknown indication
     Dosage: UNK, AT NIGHT ON FACE
     Route: 061

REACTIONS (3)
  - Pigmentation disorder [Not Recovered/Not Resolved]
  - Application site pain [Not Recovered/Not Resolved]
  - Application site erythema [Not Recovered/Not Resolved]

NARRATIVE: CASE EVENT DATE: 20230101
